FAERS Safety Report 14066999 (Version 1)
Quarter: 2017Q4

REPORT INFORMATION
  Report Type: Spontaneous
  Country: FI (occurrence: FI)
  Receive Date: 20171009
  Receipt Date: 20171009
  Transmission Date: 20180321
  Serious: Yes (Hospitalization)
  Sender: FDA-Public Use
  Company Number: FI-B.I. PHARMACEUTICALS,INC./RIDGEFIELD-2017-BI-053512

PATIENT
  Age: 79 Year
  Sex: Female

DRUGS (4)
  1. GABAPENTIN. [Concomitant]
     Active Substance: GABAPENTIN
     Indication: PAIN
     Route: 065
  2. SIFROL ER [Suspect]
     Active Substance: PRAMIPEXOLE
     Route: 065
  3. SIFROL ER [Suspect]
     Active Substance: PRAMIPEXOLE
     Indication: PARKINSONISM
     Route: 065
  4. PARACETAMOL (EXACT PRODUCT NAME NOT REPORTED) [Concomitant]
     Indication: PAIN
     Route: 065

REACTIONS (3)
  - Fall [Unknown]
  - Malaise [Unknown]
  - Blood pressure decreased [Unknown]
